FAERS Safety Report 7384221-4 (Version None)
Quarter: 2011Q1

REPORT INFORMATION
  Report Type: 
  Country: None (occurrence: None)
  Receive Date: 20110330
  Receipt Date: 20110317
  Transmission Date: 20110831
  Serious: Yes (Hospitalization)
  Sender: FDA-Public Use
  Company Number: US-WATSON-2011-03891

PATIENT
  Age: 11 Month
  Sex: Male

DRUGS (1)
  1. BUPROPION HCL [Suspect]
     Indication: ACCIDENTAL OVERDOSE
     Dosage: 750 MG/KG, SINGLE
     Route: 048

REACTIONS (4)
  - GRAND MAL CONVULSION [None]
  - HYPOTENSION [None]
  - METABOLIC ACIDOSIS [None]
  - ACCIDENTAL OVERDOSE [None]
